FAERS Safety Report 6033116-7 (Version None)
Quarter: 2009Q1

REPORT INFORMATION
  Report Type: 
  Country: None (occurrence: None)
  Receive Date: 20090109
  Receipt Date: 20080910
  Transmission Date: 20090719
  Serious: Yes (Life-Threatening, Other)
  Sender: FDA-Public Use
  Company Number: PHHY2008BR20977

PATIENT
  Age: 83 Year
  Sex: Female
  Weight: 70 kg

DRUGS (11)
  1. EXELON [Suspect]
     Indication: DEMENTIA ALZHEIMER'S TYPE
     Dosage: 1.5 MG, UNK
  2. EXELON [Suspect]
     Dosage: 6 MG, UNK
  3. CILOSTAZOL [Concomitant]
     Indication: CEREBROVASCULAR ACCIDENT
     Dosage: 2 TABLETS DAILY
     Route: 048
  4. SEROQUEL [Concomitant]
     Indication: DEMENTIA ALZHEIMER'S TYPE
     Dosage: 2 TABS DAILY
     Route: 048
  5. MACRODANTINA [Concomitant]
     Indication: URINARY TRACT INFECTION
     Dosage: 2 TAB DAILY
     Route: 048
     Dates: start: 20080301
  6. MEMANTINE HCL [Concomitant]
     Indication: DEMENTIA ALZHEIMER'S TYPE
     Dosage: 2 TAB DAILY
     Route: 048
  7. LASIX [Concomitant]
     Indication: HYPERTENSION
     Dosage: 1 TAB DAILY
     Route: 048
  8. NEOZINE [Concomitant]
     Indication: DEMENTIA ALZHEIMER'S TYPE
     Dosage: 5 DROPS DAILY
     Route: 048
     Dates: start: 20080301
  9. ALDACTONE [Concomitant]
     Indication: HYPERTENSION
     Dosage: 1 TAB DAILY
     Route: 048
     Dates: start: 20080601
  10. CAPTOPRIL [Concomitant]
     Indication: HYPERTENSION
     Dosage: 2 TAB DAILY
     Route: 048
  11. MACROGOL [Concomitant]
     Dosage: UNK
     Route: 048
     Dates: start: 20080301

REACTIONS (10)
  - APPARENT DEATH [None]
  - BLOOD PRESSURE INCREASED [None]
  - CHOKING [None]
  - DYSPNOEA [None]
  - HYPERHIDROSIS [None]
  - LISTLESS [None]
  - OCULAR HYPERAEMIA [None]
  - PYREXIA [None]
  - SALIVARY HYPERSECRETION [None]
  - VOMITING [None]
